FAERS Safety Report 4554501-6 (Version None)
Quarter: 2005Q1

REPORT INFORMATION
  Report Type: 
  Country: None (occurrence: None)
  Receive Date: 20050114
  Receipt Date: 20040621
  Transmission Date: 20050727
  Serious: Yes (Life-Threatening, Other)
  Sender: FDA-Public Use
  Company Number: PHFR2004GB02539

PATIENT
  Age: 71 Year
  Sex: Female

DRUGS (8)
  1. DICLOFENAC SODIUM [Suspect]
     Indication: ARTHRALGIA
     Dosage: 75 MG, BID, ORAL
     Route: 048
     Dates: start: 20040331, end: 20040507
  2. ACETYLSALICYLIC ACID SRT [Suspect]
     Indication: MYOCARDIAL ISCHAEMIA
     Dosage: 75MG/MANE, ORAL
     Route: 048
     Dates: start: 19950209, end: 20040507
  3. REMINYL [Suspect]
     Indication: DEMENTIA ALZHEIMER'S TYPE
     Dosage: 12 MG, BID, ORAL
     Route: 048
     Dates: start: 20010828, end: 20040507
  4. OXYBUTYNIN CHLORIDE [Concomitant]
  5. ATORVASTATIN (ATORVASTATIN) [Concomitant]
  6. ATENOLOL [Concomitant]
  7. ACETAMINOPHEN [Concomitant]
  8. DIAZEPAM [Concomitant]

REACTIONS (2)
  - CONSTIPATION [None]
  - DUODENAL ULCER PERFORATION [None]
